FAERS Safety Report 20412908 (Version 1)
Quarter: 2022Q1

REPORT INFORMATION
  Report Type: Spontaneous
  Country: US (occurrence: US)
  Receive Date: 20220201
  Receipt Date: 20220201
  Transmission Date: 20220423
  Serious: Yes (Hospitalization, Other)
  Sender: FDA-Public Use
  Company Number: US-MALLINCKRODT-T202200324

PATIENT
  Sex: Male

DRUGS (3)
  1. UVADEX [Suspect]
     Active Substance: METHOXSALEN
     Indication: Product used for unknown indication
     Dosage: UNK, EXTRACORPOREAL
     Route: 050
  2. UVADEX [Suspect]
     Active Substance: METHOXSALEN
     Dosage: UNK, EXTRACORPOREAL
     Route: 050
     Dates: start: 20220124, end: 20220124
  3. ANTICOAGULANT CITRATE DEXTROSE SOLUTION (ACD) NOS [Concomitant]
     Active Substance: CITRIC ACID MONOHYDRATE\DEXTROSE\SODIUM CITRATE
     Indication: Anticoagulant therapy
     Dosage: UNK
     Route: 065
     Dates: start: 20220124, end: 20220124

REACTIONS (6)
  - Haemolysis [Unknown]
  - Pneumonia [Unknown]
  - Irritability [Unknown]
  - Paraesthesia [Unknown]
  - Nausea [Unknown]
  - Device issue [Unknown]

NARRATIVE: CASE EVENT DATE: 20220124
